FAERS Safety Report 21315876 (Version 3)
Quarter: 2023Q2

REPORT INFORMATION
  Report Type: Report from Study
  Country: US (occurrence: None)
  Receive Date: 20220910
  Receipt Date: 20230511
  Transmission Date: 20230721
  Serious: Yes (Other)
  Sender: FDA-Public Use
  Company Number: US-ROCHE-3135707

PATIENT
  Age: 60 Year
  Sex: Male
  Weight: 131 kg

DRUGS (29)
  1. RANIBIZUMAB [Suspect]
     Active Substance: RANIBIZUMAB
     Indication: Diabetic retinal oedema
     Dosage: HE RECEIVED DOSE 10 MG/ML OF STUDY DRUG.?ON 28/JUN/2022, HE RECEIVED MOST RECENT DOSE 100 MG/ML OF
     Route: 050
     Dates: start: 20210407
  2. RANIBIZUMAB [Suspect]
     Active Substance: RANIBIZUMAB
  3. RANIBIZUMAB [Suspect]
     Active Substance: RANIBIZUMAB
  4. RANIBIZUMAB [Suspect]
     Active Substance: RANIBIZUMAB
  5. RANIBIZUMAB [Suspect]
     Active Substance: RANIBIZUMAB
  6. RANIBIZUMAB [Suspect]
     Active Substance: RANIBIZUMAB
  7. RANIBIZUMAB [Concomitant]
     Active Substance: RANIBIZUMAB
     Dosage: HE RECEIVED FIRST DOSE 6 MG/ML OF STUDY DRUG.?ON 16/MAR/2022, HE RECEIVED THE MOST RECENT DOSE 6 MG/
     Route: 050
     Dates: start: 20210407
  8. AMLODIPINE BESYLATE [Concomitant]
     Active Substance: AMLODIPINE BESYLATE
     Indication: Hypertension
     Dosage: 10 MG/ML
     Route: 048
     Dates: start: 2000
  9. ATORVASTATIN [Concomitant]
     Active Substance: ATORVASTATIN
     Indication: Blood cholesterol increased
     Dosage: 80 MG/ML
     Route: 048
     Dates: start: 2000
  10. BELBUCA [Concomitant]
     Active Substance: BUPRENORPHINE HYDROCHLORIDE
     Indication: Diabetic neuropathy
     Dosage: 300 MG/ML
     Route: 048
     Dates: start: 2000
  11. BENAZEPRIL HYDROCHLORIDE [Concomitant]
     Active Substance: BENAZEPRIL HYDROCHLORIDE
     Indication: Hypertension
     Dosage: 40 MG/ML
     Route: 048
     Dates: start: 2000
  12. CHLORTHALIDONE [Concomitant]
     Active Substance: CHLORTHALIDONE
     Indication: Oedema peripheral
     Dosage: 25 MG/ML
     Route: 048
     Dates: start: 2000
  13. FLUTICASONE PROPIONATE [Concomitant]
     Active Substance: FLUTICASONE PROPIONATE
     Indication: Seasonal allergy
     Dosage: 50 MG/ML
     Route: 045
     Dates: start: 2000
  14. GABAPENTIN [Concomitant]
     Active Substance: GABAPENTIN
     Indication: Diabetic neuropathy
     Dosage: 600 MG/ML
     Route: 048
     Dates: start: 2000
  15. GLIPIZIDE [Concomitant]
     Active Substance: GLIPIZIDE
     Indication: Type 2 diabetes mellitus
     Dosage: 10 MG/ML
     Route: 048
     Dates: start: 2000
  16. HUMULIN NOS [Concomitant]
     Active Substance: INSULIN HUMAN
     Indication: Type 2 diabetes mellitus
     Dosage: 15 U
     Route: 058
     Dates: start: 2000
  17. JANUMET XR [Concomitant]
     Active Substance: METFORMIN HYDROCHLORIDE\SITAGLIPTIN PHOSPHATE
     Indication: Type 2 diabetes mellitus
     Dosage: 100 MG/ML
     Route: 048
     Dates: start: 2000
  18. PROAIR HFA [Concomitant]
     Active Substance: ALBUTEROL SULFATE
     Indication: Asthma
     Dosage: 1 U
     Route: 045
     Dates: start: 2000
  19. SUMATRIPTAN [Concomitant]
     Active Substance: SUMATRIPTAN
     Indication: Migraine
     Dosage: 50 MG/ML
     Route: 048
     Dates: start: 2000
  20. VASCEPA [Concomitant]
     Active Substance: ICOSAPENT ETHYL
     Indication: Blood cholesterol increased
     Dosage: 1 MG/ML
     Route: 048
     Dates: start: 2000
  21. CHOLECALCIFEROL [Concomitant]
     Active Substance: CHOLECALCIFEROL
     Dosage: 1.2 MG/ML
     Route: 048
     Dates: start: 2000
  22. ZOLPIDEM [Concomitant]
     Active Substance: ZOLPIDEM TARTRATE
     Indication: Insomnia
     Dosage: 10 MG/ML
     Route: 048
     Dates: start: 2000
  23. CYCLOBENZAPRINE HYDROCHLORIDE [Concomitant]
     Active Substance: CYCLOBENZAPRINE HYDROCHLORIDE
     Indication: Muscle spasms
     Dosage: 10 MG/ML
     Route: 048
     Dates: start: 2000
  24. KETOCONAZOLE [Concomitant]
     Active Substance: KETOCONAZOLE
     Indication: Tinea pedis
     Route: 062
     Dates: start: 2000
  25. MUPIROCIN [Concomitant]
     Active Substance: MUPIROCIN
     Indication: Impetigo
     Route: 062
     Dates: start: 2000
  26. OCUFLOX [Concomitant]
     Active Substance: OFLOXACIN
     Dates: start: 20220627, end: 20220705
  27. PRED FORTE [Concomitant]
     Active Substance: PREDNISOLONE ACETATE
     Dates: start: 20220627, end: 20220705
  28. ASPIRIN [Concomitant]
     Active Substance: ASPIRIN
     Indication: Cardiovascular event prophylaxis
     Dates: start: 20221122
  29. PREDNISOLONE [Concomitant]
     Active Substance: PREDNISOLONE
     Indication: Vitrectomy
     Dates: start: 20221010, end: 20221017

REACTIONS (1)
  - Vitreous haemorrhage [Recovered/Resolved]

NARRATIVE: CASE EVENT DATE: 20220706
